FAERS Safety Report 18816462 (Version 1)
Quarter: 2021Q1

REPORT INFORMATION
  Report Type: Spontaneous
  Country: GB (occurrence: GB)
  Receive Date: 20210201
  Receipt Date: 20210201
  Transmission Date: 20210419
  Serious: No
  Sender: FDA-Public Use
  Company Number: GB-PFIZER INC-2021080684

PATIENT
  Sex: Female

DRUGS (1)
  1. SAYANA PRESS [Suspect]
     Active Substance: MEDROXYPROGESTERONE\MEDROXYPROGESTERONE ACETATE
     Dosage: STRENGTH: 104MG/0.65ML

REACTIONS (4)
  - Drug dose omission by device [Unknown]
  - Injection site bruising [Unknown]
  - Device issue [Unknown]
  - Injection site pain [Unknown]
